FAERS Safety Report 8219101-5 (Version None)
Quarter: 2012Q1

REPORT INFORMATION
  Report Type: 
  Country: None (occurrence: None)
  Receive Date: 20120307
  Receipt Date: 20100827
  Transmission Date: 20120608
  Serious: No
  Sender: FDA-Public Use
  Company Number: PHHY2010US57354

PATIENT
  Sex: Male
  Weight: 59.9 kg

DRUGS (1)
  1. AFINITOR [Suspect]
     Indication: METASTATIC RENAL CELL CARCINOMA
     Dosage: 5 MG, 2 TAB BID, ORAL
     Route: 048
     Dates: start: 20100602

REACTIONS (2)
  - DYSPNOEA [None]
  - COUGH [None]
